FAERS Safety Report 4866938-6 (Version None)
Quarter: 2005Q4

REPORT INFORMATION
  Report Type: 
  Country: None (occurrence: None)
  Receive Date: 20051222
  Receipt Date: 20051215
  Transmission Date: 20060501
  Serious: Yes (Hospitalization)
  Sender: FDA-Public Use
  Company Number: 2005136816

PATIENT
  Age: 78 Year
  Sex: Male
  Weight: 84 kg

DRUGS (9)
  1. FELDENE [Suspect]
     Indication: PAIN
     Dosage: ORAL
     Route: 048
     Dates: start: 20050620, end: 20050627
  2. ALDACTAZIDE [Suspect]
     Indication: ILL-DEFINED DISORDER
     Dosage: ORAL
     Route: 048
     Dates: start: 19950615, end: 20050624
  3. APPROVEL         (IRBESARTAN) [Suspect]
     Indication: ILL-DEFINED DISORDER
     Dosage: ORAL
     Route: 048
     Dates: start: 19950615, end: 20050624
  4. ALLOPURINOL [Concomitant]
  5. PLAVIX [Concomitant]
  6. PHENYTOIN [Concomitant]
  7. VASTAREL (TRIMETAZIDINE HYDROCHLORIDE) [Concomitant]
  8. TAMSULOSIN HCL [Concomitant]
  9. ACETAMINOPHEN W/ PROPOXYPHENE HCL [Concomitant]

REACTIONS (21)
  - ANAEMIA [None]
  - BLOOD BICARBONATE DECREASED [None]
  - C-REACTIVE PROTEIN INCREASED [None]
  - CARDIAC FAILURE [None]
  - CARDIOMEGALY [None]
  - CHEST X-RAY ABNORMAL [None]
  - CLUMSINESS [None]
  - CONTUSION [None]
  - DIFFICULTY IN WALKING [None]
  - DRUG INTERACTION [None]
  - FALL [None]
  - HYPERKALAEMIA [None]
  - HYPOCAPNIA [None]
  - HYPOXIA [None]
  - LABORATORY TEST ABNORMAL [None]
  - OEDEMA PERIPHERAL [None]
  - PAIN [None]
  - PCO2 DECREASED [None]
  - PERIORBITAL HAEMATOMA [None]
  - PO2 INCREASED [None]
  - RENAL FAILURE [None]
